FAERS Safety Report 9516513 (Version 3)
Quarter: 2013Q4

REPORT INFORMATION
  Report Type: Report from Study
  Country: DE (occurrence: DE)
  Receive Date: 20130911
  Receipt Date: 20131015
  Transmission Date: 20140711
  Serious: Yes (Hospitalization)
  Sender: FDA-Public Use
  Company Number: PHHO2013DE011223

PATIENT
  Age: 58 Year
  Sex: Male
  Weight: 79.8 kg

DRUGS (3)
  1. EVEROLIMUS [Suspect]
     Indication: TUBEROUS SCLEROSIS
     Dosage: 12 MG, UNK
     Dates: start: 20130801, end: 20130801
  2. EVEROLIMUS [Suspect]
     Dosage: 11 MG, UNK
     Dates: start: 20130809, end: 20130809
  3. EVEROLIMUS [Suspect]
     Dosage: 30 MG, UNK
     Dates: start: 20130817, end: 20130817

REACTIONS (2)
  - Tachyarrhythmia [Recovered/Resolved]
  - Atrial fibrillation [Recovered/Resolved]
